FAERS Safety Report 24226286 (Version 1)
Quarter: 2024Q3

REPORT INFORMATION
  Report Type: Spontaneous
  Country: PL (occurrence: PL)
  Receive Date: 20240820
  Receipt Date: 20240820
  Transmission Date: 20241017
  Serious: Yes (Death, Hospitalization, Other)
  Sender: AMGEN
  Company Number: PL-ROCHE-10000007979

PATIENT
  Age: 67 Year
  Sex: Female

DRUGS (3)
  1. BEVACIZUMAB [Suspect]
     Active Substance: BEVACIZUMAB
     Indication: Hepatocellular carcinoma
     Dosage: THE LAST CYCLE OF BEVACIZUMAB WAS ADMINISTERED ON 29/JUN/2023
     Route: 065
     Dates: start: 20221221, end: 20230629
  2. ATEZOLIZUMAB [Suspect]
     Active Substance: ATEZOLIZUMAB
     Indication: Hepatocellular carcinoma
     Dosage: THE LAST CYCLE OF ATEZOLIZUMAB WAS ADMINISTERED ON 29/JUN/2023
     Route: 065
     Dates: start: 20221221, end: 20230629
  3. PREDNISONE [Concomitant]
     Active Substance: PREDNISONE
     Dates: end: 20231003

REACTIONS (7)
  - Death [Fatal]
  - COVID-19 pneumonia [Unknown]
  - Immune-mediated lung disease [Recovered/Resolved]
  - Pneumonia influenzal [Unknown]
  - General physical health deterioration [Unknown]
  - Tumour inflammation [Unknown]
  - Off label use [Unknown]

NARRATIVE: CASE EVENT DATE: 20221221
